FAERS Safety Report 9053886 (Version 2)
Quarter: 2013Q1

REPORT INFORMATION
  Report Type: Report from Study
  Country: US (occurrence: US)
  Receive Date: 20130129
  Receipt Date: 20130129
  Transmission Date: 20140127
  Serious: Yes (Death, Hospitalization)
  Sender: FDA-Public Use
  Company Number: US-ACTELION-A-NJ2011-57367

PATIENT
  Age: 66 Year
  Sex: Female

DRUGS (6)
  1. TRACLEER [Suspect]
     Indication: PULMONARY ARTERIAL HYPERTENSION
     Dosage: UNK
     Route: 048
  2. VENTAVIS [Suspect]
     Indication: PULMONARY ARTERIAL HYPERTENSION
     Dosage: UNK
     Route: 055
  3. VERAPAMIL [Concomitant]
  4. ASPIRIN [Concomitant]
  5. PRADAXA [Concomitant]
  6. OXYGEN [Concomitant]

REACTIONS (10)
  - Death [Fatal]
  - Fluid overload [Unknown]
  - Oedema peripheral [Unknown]
  - Oedema [Unknown]
  - Hypotension [Unknown]
  - Sleep disorder [Unknown]
  - Oropharyngeal pain [Unknown]
  - Weight decreased [Unknown]
  - Weight increased [Unknown]
  - Retching [Unknown]
